FAERS Safety Report 23063391 (Version 1)
Quarter: 2023Q4

REPORT INFORMATION
  Report Type: Spontaneous
  Country: US (occurrence: None)
  Receive Date: 20231012
  Receipt Date: 20231012
  Transmission Date: 20240109
  Serious: Yes (Disabling)
  Sender: FDA-Public Use
  Company Number: None

PATIENT
  Age: 42 Year
  Sex: Female
  Weight: 95.4 kg

DRUGS (5)
  1. SYNTHROID [Suspect]
     Active Substance: LEVOTHYROXINE SODIUM
     Indication: Hypothyroidism
     Dosage: OTHER QUANTITY : 1 TABLET(S);?
     Route: 048
  2. DOXYCYCLINE [Concomitant]
  3. FISH OIL [Concomitant]
     Active Substance: FISH OIL
  4. Osteoblex [Concomitant]
  5. IRON [Concomitant]

REACTIONS (4)
  - Contusion [None]
  - Petechiae [None]
  - Inflammation [None]
  - Coagulation time abnormal [None]

NARRATIVE: CASE EVENT DATE: 20231012
